FAERS Safety Report 8612440-5 (Version None)
Quarter: 2012Q3

REPORT INFORMATION
  Report Type: 
  Country: None (occurrence: None)
  Receive Date: 20120822
  Receipt Date: 20120814
  Transmission Date: 20120928
  Serious: Yes (Hospitalization)
  Sender: FDA-Public Use
  Company Number: US-US-EMD SERONO, INC.-7126444

PATIENT
  Sex: Female

DRUGS (3)
  1. VICODIN [Concomitant]
     Indication: PRODUCT USED FOR UNKNOWN INDICATION
  2. REBIF [Suspect]
     Indication: MULTIPLE SCLEROSIS
     Route: 058
     Dates: start: 20120411, end: 20120502
  3. REBIF [Suspect]
     Route: 057
     Dates: end: 20120811

REACTIONS (2)
  - MULTIPLE SCLEROSIS RELAPSE [None]
  - STAPHYLOCOCCAL INFECTION [None]
